FAERS Safety Report 17847398 (Version 1)
Quarter: 2020Q2

REPORT INFORMATION
  Report Type: Spontaneous
  Country: US (occurrence: US)
  Receive Date: 20200601
  Receipt Date: 20200601
  Transmission Date: 20200714
  Serious: Yes (Life-Threatening, Hospitalization, Other)
  Sender: FDA-Public Use
  Company Number: US-PFIZER INC-2020200594

PATIENT
  Age: 25 Year
  Sex: Male

DRUGS (18)
  1. CYTARABINE. [Suspect]
     Active Substance: CYTARABINE
     Indication: ACUTE LYMPHOCYTIC LEUKAEMIA
     Dosage: UNK, CYCLIC
     Dates: start: 1980
  2. L-ASPARAGINASE [Concomitant]
     Active Substance: ASPARAGINASE
     Indication: ACUTE LYMPHOCYTIC LEUKAEMIA
     Dosage: 6,000 UNITS/SQ M, WAS GIVEN ONE HOUR AFTER THE LAST DOSE OF CYTARABINE
     Dates: start: 1982
  3. GENTAMICIN SULFATE. [Concomitant]
     Active Substance: GENTAMICIN SULFATE
     Indication: EVIDENCE BASED TREATMENT
     Dosage: UNK
  4. MEZLOCILLIN SODIUM MONOHYDRATE. [Concomitant]
     Active Substance: MEZLOCILLIN SODIUM MONOHYDRATE
     Indication: EVIDENCE BASED TREATMENT
     Dosage: UNK
  5. AMPHOTERICIN B. [Concomitant]
     Active Substance: AMPHOTERICIN B
     Indication: EVIDENCE BASED TREATMENT
     Dosage: UNK
  6. METHOTREXATE. [Concomitant]
     Active Substance: METHOTREXATE
     Indication: ACUTE LYMPHOCYTIC LEUKAEMIA
     Dosage: UNK, CYCLIC
     Route: 037
     Dates: start: 1980
  7. CYTARABINE. [Suspect]
     Active Substance: CYTARABINE
     Dosage: CONSOLIDATION COURSE, HIGH-DOSE, STARTED ON DAY 42
  8. VINCRISTINE SULFATE. [Concomitant]
     Active Substance: VINCRISTINE SULFATE
     Indication: ACUTE LYMPHOCYTIC LEUKAEMIA
     Dosage: UNK, CYCLIC
     Dates: start: 1980
  9. THIOGUANINE [Concomitant]
     Active Substance: THIOGUANINE
     Indication: ACUTE LYMPHOCYTIC LEUKAEMIA
     Dosage: UNK, CYCLIC
     Dates: start: 1980
  10. DOXORUBICIN [Concomitant]
     Active Substance: DOXORUBICIN
     Indication: ACUTE LYMPHOCYTIC LEUKAEMIA
     Dosage: UNK, CYCLIC,PERIODIC REINDUCTION COURSE
     Dates: start: 1980
  11. CYTARABINE. [Suspect]
     Active Substance: CYTARABINE
     Dosage: INTERMITTENT HIGH-DOSE, 3 G/SQ M  INFUSED INTRAVENOUSLY (IV) EVERY 12 HOURS FOR TEN DOSES
     Route: 042
     Dates: start: 1982
  12. PREDNISONE. [Concomitant]
     Active Substance: PREDNISONE
     Dosage: UNK, CYCLIC,PERIODIC REINDUCTION COURSE
     Dates: start: 1980
  13. DOXORUBICIN HYDROCHLORIDE. [Concomitant]
     Active Substance: DOXORUBICIN HYDROCHLORIDE
     Dosage: 525 MG/SQ M
     Dates: start: 198209
  14. PREDNISONE. [Concomitant]
     Active Substance: PREDNISONE
     Indication: ACUTE LYMPHOCYTIC LEUKAEMIA
     Dosage: UNK, CYCLIC
     Dates: start: 1980
  15. DOXORUBICIN HYDROCHLORIDE. [Concomitant]
     Active Substance: DOXORUBICIN HYDROCHLORIDE
     Indication: ACUTE LYMPHOCYTIC LEUKAEMIA
     Dosage: UNK, CYCLIC
     Dates: start: 1980
  16. METHOTREXATE. [Concomitant]
     Active Substance: METHOTREXATE
     Indication: PROPHYLAXIS
  17. TICARCILLIN DISODIUM [Concomitant]
     Active Substance: TICARCILLIN DISODIUM
     Indication: EVIDENCE BASED TREATMENT
     Dosage: UNK
  18. VINCRISTINE [Concomitant]
     Active Substance: VINCRISTINE
     Indication: ACUTE LYMPHOCYTIC LEUKAEMIA
     Dosage: UNK, CYCLIC, PERIODIC REINDUCTION COURSES
     Dates: start: 1980

REACTIONS (2)
  - Pericarditis [Recovering/Resolving]
  - Cardiac tamponade [Recovering/Resolving]
